FAERS Safety Report 6409394-9 (Version None)
Quarter: 2009Q4

REPORT INFORMATION
  Report Type: 
  Country: None (occurrence: None)
  Receive Date: 20091019
  Receipt Date: 20091019
  Transmission Date: 20100525
  Serious: Yes (Hospitalization)
  Sender: FDA-Public Use
  Company Number: None

PATIENT
  Sex: Male
  Weight: 13.7 kg

DRUGS (17)
  1. NIFURTIMOX 120MG PILLS BAYER [Suspect]
     Indication: NEUROBLASTOMA RECURRENT
     Dosage: 120MG (1 TAB) TID ORAL
     Route: 048
     Dates: start: 20091005, end: 20091014
  2. MORPHINE [Concomitant]
  3. CEFEPIME [Concomitant]
  4. TYLENOL W/ CODEINE [Concomitant]
  5. ZOFRAN [Concomitant]
  6. SEPTRA [Concomitant]
  7. MIRALAX [Concomitant]
  8. BENADRYL [Concomitant]
  9. BENADRYL [Concomitant]
  10. PERIACTIN [Concomitant]
  11. ALBUMIN (HUMAN) [Concomitant]
  12. ALBUMIN (HUMAN) [Concomitant]
  13. LASIX [Concomitant]
  14. VERSED [Concomitant]
  15. KETAMINE HCL [Concomitant]
  16. DECADRON [Concomitant]
  17. ATIVAN [Concomitant]

REACTIONS (4)
  - CONDITION AGGRAVATED [None]
  - MALIGNANT NEOPLASM PROGRESSION [None]
  - NEUROBLASTOMA [None]
  - PLEURAL EFFUSION [None]
